FAERS Safety Report 9256820 (Version 1)
Quarter: 2013Q2

REPORT INFORMATION
  Report Type: Spontaneous
  Country: SE (occurrence: None)
  Receive Date: 20130423
  Receipt Date: 20130423
  Transmission Date: 20140414
  Serious: Yes (Hospitalization)
  Sender: FDA-Public Use
  Company Number: AUR-APL-2013-03211

PATIENT
  Age: 87 Year
  Sex: Male

DRUGS (1)
  1. RAMIPRIL (RAMIPRIL) [Suspect]
     Indication: HYPERTENSION

REACTIONS (3)
  - Dehydration [None]
  - Hypotension [None]
  - Blood creatinine increased [None]
